FAERS Safety Report 4872917-5 (Version None)
Quarter: 2006Q1

REPORT INFORMATION
  Report Type: 
  Country: None (occurrence: None)
  Receive Date: 20060105
  Receipt Date: 20050118
  Transmission Date: 20060701
  Serious: No
  Sender: FDA-Public Use
  Company Number: US-BRISTOL-MYERS SQUIBB COMPANY-12835013

PATIENT
  Sex: Female
  Weight: 100 kg

DRUGS (6)
  1. SERZONE [Suspect]
     Indication: DEPRESSION
  2. RISPERDAL [Concomitant]
  3. XALATAN [Concomitant]
  4. ZOLOFT [Concomitant]
  5. AVANDIA [Concomitant]
  6. COSOPT [Concomitant]

REACTIONS (3)
  - ABDOMINAL PAIN UPPER [None]
  - GASTROINTESTINAL DISORDER [None]
  - HEPATIC ENZYME INCREASED [None]
